FAERS Safety Report 21682826 (Version 8)
Quarter: 2023Q2

REPORT INFORMATION
  Report Type: Spontaneous
  Country: US (occurrence: None)
  Receive Date: 20221205
  Receipt Date: 20230522
  Transmission Date: 20230722
  Serious: Yes (Hospitalization, Other)
  Sender: FDA-Public Use
  Company Number: US-FARMAPROD-202210-2129

PATIENT
  Age: 75 Year
  Sex: Female

DRUGS (36)
  1. OXERVATE [Suspect]
     Active Substance: CENEGERMIN-BKBJ
     Indication: Neurotrophic keratopathy
     Route: 047
     Dates: start: 20220926, end: 20221121
  2. OXERVATE [Suspect]
     Active Substance: CENEGERMIN-BKBJ
     Route: 047
     Dates: start: 20221203, end: 20230118
  3. OXERVATE [Suspect]
     Active Substance: CENEGERMIN-BKBJ
     Route: 047
     Dates: start: 20230120, end: 202303
  4. OXERVATE [Suspect]
     Active Substance: CENEGERMIN-BKBJ
     Route: 047
     Dates: start: 20230317
  5. DIAMOX SEQUELS [Suspect]
     Active Substance: ACETAZOLAMIDE
     Route: 048
     Dates: start: 20221003, end: 20221110
  6. REFRESH TEARS [Concomitant]
     Active Substance: CARBOXYMETHYLCELLULOSE SODIUM
  7. PREDNISOLONE [Concomitant]
     Active Substance: PREDNISOLONE
     Dosage: 15 MILLIGRAMS / 5 MILLILITERS
  8. FLOVENT HFA [Concomitant]
     Active Substance: FLUTICASONE PROPIONATE
     Dosage: AEROSOL WITH ADAPTER
  9. SACCHAROMYCES CEREVISIAE [Concomitant]
     Active Substance: SACCHAROMYCES CEREVISIAE
  10. CALCIUM [Concomitant]
     Active Substance: CALCIUM
  11. VITAMIN B12 [Concomitant]
     Active Substance: CYANOCOBALAMIN
  12. VITAMIN B COMPLEX [Concomitant]
     Active Substance: CYANOCOBALAMIN\DEXPANTHENOL\NIACINAMIDE\PYRIDOXINE HYDROCHLORIDE\RIBOFLAVIN 5^-PHOSPHATE SODIUM\THIA
  13. IRON [Concomitant]
     Active Substance: IRON
     Dosage: 325 (65) MILLIGRAMS
  14. VITAMIN C [Concomitant]
     Active Substance: ASCORBIC ACID
  15. HERBALS\TURMERIC [Concomitant]
     Active Substance: HERBALS\TURMERIC
  16. FLAXSEED [Concomitant]
     Active Substance: FLAX SEED
  17. FISH OIL [Concomitant]
     Active Substance: FISH OIL
  18. HUMIRA [Concomitant]
     Active Substance: ADALIMUMAB
     Dosage: 40 MILLIGRAMS / 0.4 MILLILITERS SYRINGE KIT (CITRATE FREE)
  19. LEFLUNOMIDE [Concomitant]
     Active Substance: LEFLUNOMIDE
  20. VALTREX [Concomitant]
     Active Substance: VALACYCLOVIR HYDROCHLORIDE
  21. MOXIFLOXACIN [Concomitant]
     Active Substance: MOXIFLOXACIN
     Route: 061
     Dates: start: 20230106
  22. VALGANCICLOVIR HYDROCHLORIDE [Concomitant]
     Active Substance: VALGANCICLOVIR HYDROCHLORIDE
  23. DOXYCYCLINE HYCLATE [Concomitant]
     Active Substance: DOXYCYCLINE HYCLATE
  24. LUMIGAN [Concomitant]
     Active Substance: BIMATOPROST
     Route: 061
  25. COMBIGAN [Concomitant]
     Active Substance: BRIMONIDINE TARTRATE\TIMOLOL MALEATE
     Dosage: 0.2% - 0.5%
  26. VALTREX [Concomitant]
     Active Substance: VALACYCLOVIR HYDROCHLORIDE
  27. DORZOLAMIDE\TIMOLOL [Concomitant]
     Active Substance: DORZOLAMIDE\TIMOLOL
  28. ADVAIR HFA [Concomitant]
     Active Substance: FLUTICASONE PROPIONATE\SALMETEROL XINAFOATE
     Dosage: 115-21 MCG HYDROFLUOROALKANE AEROSOL WITH ADAPTER
  29. OXYGEN [Concomitant]
     Active Substance: OXYGEN
  30. COSOPT [Concomitant]
     Active Substance: DORZOLAMIDE HYDROCHLORIDE\TIMOLOL MALEATE
     Route: 061
  31. GABAPENTIN [Concomitant]
     Active Substance: GABAPENTIN
     Route: 048
  32. ROBITUSSIN COUGH-SOAR THROAT [Concomitant]
  33. MUCINEX [Concomitant]
     Active Substance: GUAIFENESIN
     Dosage: EXTENDED RELEASE FOR 12 HOURS
  34. TYLENOL [Concomitant]
     Active Substance: ACETAMINOPHEN
  35. ASPIRIN [Concomitant]
     Active Substance: ASPIRIN
  36. VITAL TEARS [Concomitant]

REACTIONS (13)
  - Pneumonia [Not Recovered/Not Resolved]
  - Eye infection fungal [Not Recovered/Not Resolved]
  - Hyponatraemia [Recovered/Resolved]
  - Weight decreased [Unknown]
  - Rhinorrhoea [Not Recovered/Not Resolved]
  - Facial pain [Unknown]
  - Corneal transplant [Unknown]
  - Fall [Unknown]
  - Cough [Not Recovered/Not Resolved]
  - Ulcerative keratitis [Unknown]
  - Eye pain [Unknown]
  - Device use issue [Unknown]
  - Wrong technique in product usage process [Unknown]

NARRATIVE: CASE EVENT DATE: 20221118
